FAERS Safety Report 25673269 (Version 1)
Quarter: 2025Q3

REPORT INFORMATION
  Report Type: Other
  Country: US (occurrence: US)
  Receive Date: 20250813
  Receipt Date: 20250813
  Transmission Date: 20251020
  Serious: Yes (Hospitalization, Other)
  Sender: APPCO PHARMA LLC
  Company Number: US-Appco Pharma LLC-2182382

PATIENT
  Age: 48 Year
  Sex: Female

DRUGS (8)
  1. VENLAFAXINE [Suspect]
     Active Substance: VENLAFAXINE HYDROCHLORIDE
     Indication: Anxiety
  2. AMLODIPINE [Interacting]
     Active Substance: AMLODIPINE BESYLATE
  3. KETAMINE HYDROCHLORIDE [Interacting]
     Active Substance: KETAMINE HYDROCHLORIDE
  4. LISINOPRIL [Interacting]
     Active Substance: LISINOPRIL
  5. HYDROXYZINE [Interacting]
     Active Substance: HYDROXYZINE HYDROCHLORIDE
  6. TRAZODONE [Interacting]
     Active Substance: TRAZODONE HYDROCHLORIDE
  7. BREXPIPRAZOLE [Interacting]
     Active Substance: BREXPIPRAZOLE
  8. CARIPRAZINE [Interacting]
     Active Substance: CARIPRAZINE

REACTIONS (2)
  - Drug interaction [Recovered/Resolved]
  - Serotonin syndrome [Recovered/Resolved]
